FAERS Safety Report 15153977 (Version 1)
Quarter: 2018Q3

REPORT INFORMATION
  Report Type: Spontaneous
  Country: NL (occurrence: NL)
  Receive Date: 20180717
  Receipt Date: 20180717
  Transmission Date: 20181010
  Serious: Yes (Disabling)
  Sender: FDA-Public Use
  Company Number: NL-JNJFOC-20180708780

PATIENT
  Age: 79 Year
  Sex: Female
  Weight: 65 kg

DRUGS (19)
  1. DARATUMUMAB [Suspect]
     Active Substance: DARATUMUMAB
     Indication: PLASMA CELL MYELOMA
     Dosage: 16 MG/KG DAY 1,8,15,22 OF THE CURE (4 WEEKS) 2 CYCLES
     Route: 065
     Dates: start: 20180314, end: 20180609
  2. METOCLOPRAMIDE. [Concomitant]
     Active Substance: METOCLOPRAMIDE
  3. PARACETAMOL W/TRAMADOL [Concomitant]
     Active Substance: ACETAMINOPHEN\TRAMADOL
  4. SOTALOL. [Concomitant]
     Active Substance: SOTALOL
  5. CANDESARTAN. [Concomitant]
     Active Substance: CANDESARTAN
  6. NINLARO [Suspect]
     Active Substance: IXAZOMIB CITRATE
     Indication: PLASMA CELL MYELOMA
     Dosage: 4 MG DAY 1,8 AND 15 OF CURE OF 4 WEEKS (9 CYCLES, ALREADY HAD 2)
     Route: 065
     Dates: start: 20180314, end: 20180609
  7. PANTOPRAZOL [Concomitant]
     Active Substance: PANTOPRAZOLE SODIUM
  8. DABIGATRAN [Concomitant]
     Active Substance: DABIGATRAN
  9. ALENDRONINEZUUR [Concomitant]
     Active Substance: ALENDRONIC ACID
  10. FLUCONAZOL [Concomitant]
     Active Substance: FLUCONAZOLE
  11. ISOSORBIDEDINITRAAT [Concomitant]
     Route: 060
  12. TEMAZEPAM. [Concomitant]
     Active Substance: TEMAZEPAM
  13. DEXAMETHASONE. [Concomitant]
     Active Substance: DEXAMETHASONE
  14. VALACICLOVIR [Concomitant]
     Active Substance: VALACYCLOVIR HYDROCHLORIDE
  15. OXYNORM [Concomitant]
     Active Substance: OXYCODONE HYDROCHLORIDE
  16. FENTANYL. [Concomitant]
     Active Substance: FENTANYL
  17. HYDROCHLOORTHIAZIDE [Concomitant]
     Active Substance: HYDROCHLOROTHIAZIDE
  18. DERMOVATE [Concomitant]
     Active Substance: CLOBETASOL
  19. COTRIMOXAZOL [Concomitant]
     Active Substance: SULFAMETHOXAZOLE\TRIMETHOPRIM

REACTIONS (1)
  - Peripheral sensorimotor neuropathy [Unknown]

NARRATIVE: CASE EVENT DATE: 20180609
